FAERS Safety Report 5669500-0 (Version None)
Quarter: 2008Q1

REPORT INFORMATION
  Report Type: 
  Country: None (occurrence: None)
  Receive Date: 20080317
  Receipt Date: 20080305
  Transmission Date: 20080703
  Serious: Yes (Congenital Anomaly)
  Sender: FDA-Public Use
  Company Number: CH-GILEAD-2008-0015641

PATIENT
  Sex: Male
  Weight: 1.9 kg

DRUGS (3)
  1. VIREAD [Suspect]
     Indication: DRUG EXPOSURE DURING PREGNANCY
     Route: 064
     Dates: start: 20070101, end: 20070907
  2. EMTRIVA [Suspect]
     Indication: DRUG EXPOSURE DURING PREGNANCY
     Route: 064
     Dates: start: 20070101, end: 20070907
  3. EFAVIRENZ [Suspect]
     Indication: DRUG EXPOSURE DURING PREGNANCY
     Route: 064
     Dates: start: 20070101, end: 20070202

REACTIONS (2)
  - HIP DYSPLASIA [None]
  - PULMONARY VALVE STENOSIS [None]
